FAERS Safety Report 10283585 (Version 1)
Quarter: 2014Q3

REPORT INFORMATION
  Report Type: Spontaneous
  Country: US (occurrence: US)
  Receive Date: 20140708
  Receipt Date: 20140708
  Transmission Date: 20150326
  Serious: Yes (Hospitalization, Other)
  Sender: FDA-Public Use
  Company Number: US-AMGEN-USASP2014050248

PATIENT
  Age: 72 Year
  Sex: Female

DRUGS (3)
  1. GLUCOPHAGE [Suspect]
     Active Substance: METFORMIN HYDROCHLORIDE
     Indication: PRODUCT USED FOR UNKNOWN INDICATION
     Dosage: UNK
     Route: 065
  2. ENBREL [Suspect]
     Active Substance: ETANERCEPT
     Indication: PSORIATIC ARTHROPATHY
     Dosage: UNK
     Route: 065
     Dates: start: 2003
  3. ENBREL [Suspect]
     Active Substance: ETANERCEPT
     Indication: PSORIASIS

REACTIONS (22)
  - Appendix disorder [Recovered/Resolved]
  - Heart rate irregular [Recovered/Resolved]
  - Haemoglobin decreased [Recovered/Resolved]
  - Blood disorder [Unknown]
  - Local swelling [Recovered/Resolved]
  - Glycosylated haemoglobin increased [Recovered/Resolved]
  - Hand deformity [Not Recovered/Not Resolved]
  - Musculoskeletal discomfort [Not Recovered/Not Resolved]
  - Arthropathy [Not Recovered/Not Resolved]
  - Oxygen saturation decreased [Recovered/Resolved]
  - Malaise [Recovered/Resolved]
  - Vaginal discharge [Recovered/Resolved]
  - Hypoglycaemia [Recovered/Resolved]
  - Psoriasis [Not Recovered/Not Resolved]
  - Varices oesophageal [Recovered/Resolved]
  - Blood glucose increased [Recovered/Resolved]
  - Endometrial cancer [Recovered/Resolved]
  - Palpitations [Recovered/Resolved]
  - Oesophageal ulcer [Recovered/Resolved]
  - Carbohydrate antigen 125 increased [Recovered/Resolved]
  - Feeling hot [Recovered/Resolved]
  - Dyspnoea [Recovered/Resolved]

NARRATIVE: CASE EVENT DATE: 2007
